FAERS Safety Report 24255151 (Version 1)
Quarter: 2024Q3

REPORT INFORMATION
  Report Type: Spontaneous
  Country: CH (occurrence: CH)
  Receive Date: 20240827
  Receipt Date: 20240827
  Transmission Date: 20241017
  Serious: Yes (Other)
  Sender: AMERICAN REGENT
  Company Number: CH-AMERICAN REGENT INC-2024003268

PATIENT
  Sex: Female

DRUGS (4)
  1. FERINJECT [Suspect]
     Active Substance: FERRIC CARBOXYMALTOSE
     Indication: Haemorrhage
     Dosage: 500 MILLIGRAM
     Dates: start: 20240425, end: 20240425
  2. FERINJECT [Suspect]
     Active Substance: FERRIC CARBOXYMALTOSE
     Dosage: 500 MILLIGRAM
     Dates: start: 20240426, end: 20240426
  3. FERINJECT [Suspect]
     Active Substance: FERRIC CARBOXYMALTOSE
     Dosage: 500 MILLIGRAM
     Dates: start: 20240504, end: 20240504
  4. FERINJECT [Suspect]
     Active Substance: FERRIC CARBOXYMALTOSE
     Dosage: 500 MILLIGRAM
     Dates: start: 20240505, end: 20240505

REACTIONS (6)
  - Serum ferritin increased [Recovering/Resolving]
  - C-reactive protein increased [Recovering/Resolving]
  - Drug ineffective [Unknown]
  - Off label use [Unknown]
  - Medication error [Unknown]
  - Inappropriate schedule of product administration [Unknown]

NARRATIVE: CASE EVENT DATE: 20240425
